FAERS Safety Report 23074820 (Version 2)
Quarter: 2023Q4

REPORT INFORMATION
  Report Type: Spontaneous
  Country: HR (occurrence: HR)
  Receive Date: 20231017
  Receipt Date: 20231031
  Transmission Date: 20240109
  Serious: Yes (Other)
  Sender: FDA-Public Use
  Company Number: HR-JNJFOC-20231032911

PATIENT
  Age: 63 Year
  Sex: Male

DRUGS (29)
  1. VELCADE [Suspect]
     Active Substance: BORTEZOMIB
     Indication: Light chain disease
     Dosage: 5 TIMES AS A PART OF VCD REGIMEN
     Route: 065
     Dates: start: 202203, end: 202205
  2. VELCADE [Suspect]
     Active Substance: BORTEZOMIB
     Indication: Plasma cell myeloma
  3. DARATUMUMAB [Suspect]
     Active Substance: DARATUMUMAB
     Indication: Light chain disease
     Dosage: 5 TIMES AS A PART OF DRD REGIMEN
     Route: 065
     Dates: start: 202208, end: 202302
  4. DARATUMUMAB [Suspect]
     Active Substance: DARATUMUMAB
     Indication: Plasma cell myeloma
  5. DOXORUBICIN HYDROCHLORIDE [Suspect]
     Active Substance: DOXORUBICIN HYDROCHLORIDE
     Indication: Light chain disease
     Dosage: 1 TIME AS A PART OF KD+ PACE REGIMEN
     Route: 065
     Dates: start: 202303
  6. DOXORUBICIN HYDROCHLORIDE [Suspect]
     Active Substance: DOXORUBICIN HYDROCHLORIDE
     Indication: Plasma cell myeloma
     Dosage: 3 TIMES AS A PART OF VAD+ IXAZOMIB REGIMEN
     Route: 065
     Dates: start: 202306, end: 202308
  7. CYCLOPHOSPHAMIDE [Suspect]
     Active Substance: CYCLOPHOSPHAMIDE
     Indication: Light chain disease
     Dosage: 5 TIMES AS A PART OF VCD REGIMEN
     Route: 065
     Dates: start: 202203, end: 202205
  8. CYCLOPHOSPHAMIDE [Suspect]
     Active Substance: CYCLOPHOSPHAMIDE
     Indication: Plasma cell myeloma
     Dosage: 1 TIME AS A PART OF KD+ PACE REGIMEN
     Route: 065
     Dates: start: 202303
  9. DEXAMETHASONE [Suspect]
     Active Substance: DEXAMETHASONE
     Indication: Light chain disease
     Dosage: 5 TIMES AS A PART OF VCD REGIMEN
     Route: 065
     Dates: start: 202203, end: 202205
  10. DEXAMETHASONE [Suspect]
     Active Substance: DEXAMETHASONE
     Indication: Plasma cell myeloma
     Dosage: 5 TIMES AS A PART OF DRD REGIMEN
     Route: 065
     Dates: start: 202208, end: 202302
  11. DEXAMETHASONE [Suspect]
     Active Substance: DEXAMETHASONE
     Dosage: 1 TIME AS A PART OF KD+PACE REGIMEN
     Route: 065
     Dates: start: 202303
  12. DEXAMETHASONE [Suspect]
     Active Substance: DEXAMETHASONE
     Dosage: 3 TIMES, AS A PART OF KD+MP REGIMEN
     Route: 065
     Dates: start: 202304, end: 202306
  13. DEXAMETHASONE [Suspect]
     Active Substance: DEXAMETHASONE
     Dosage: 3 TIMES AS A PART OF VAD+ IXAZOMIB REGIMEN
     Route: 065
     Dates: start: 202306, end: 202308
  14. LENALIDOMIDE [Suspect]
     Active Substance: LENALIDOMIDE
     Indication: Light chain disease
     Dosage: 5 TIMES AS A PART OF DRD REGIMEN
     Route: 065
     Dates: start: 202208, end: 202302
  15. LENALIDOMIDE [Suspect]
     Active Substance: LENALIDOMIDE
     Indication: Plasma cell myeloma
  16. CARFILZOMIB [Suspect]
     Active Substance: CARFILZOMIB
     Indication: Light chain disease
     Dosage: 1 TIME AS A PART OF KD+PACE REGIMEN
     Route: 065
     Dates: start: 202303
  17. CARFILZOMIB [Suspect]
     Active Substance: CARFILZOMIB
     Indication: Plasma cell myeloma
     Dosage: 3 TIMES, AS A PART OF KD+MP REGIMEN
     Route: 065
     Dates: start: 202304, end: 202306
  18. CISPLATIN [Suspect]
     Active Substance: CISPLATIN
     Indication: Light chain disease
     Dosage: 1 TIME AS A PART OF KD+PACE REGIMEN
     Route: 065
     Dates: start: 202303
  19. CISPLATIN [Suspect]
     Active Substance: CISPLATIN
     Indication: Plasma cell myeloma
  20. ETOPOSIDE [Suspect]
     Active Substance: ETOPOSIDE
     Indication: Light chain disease
     Dosage: 1 TIME AS A PART OF KD+PACE REGIMEN
     Route: 065
     Dates: start: 202303
  21. ETOPOSIDE [Suspect]
     Active Substance: ETOPOSIDE
     Indication: Plasma cell myeloma
  22. MELPHALAN [Suspect]
     Active Substance: MELPHALAN
     Indication: Light chain disease
     Dosage: 3 TIMES, AS A PART OF KD+MP REGIMEN
     Route: 065
     Dates: start: 202304, end: 202306
  23. MELPHALAN [Suspect]
     Active Substance: MELPHALAN
     Indication: Plasma cell myeloma
  24. PREDNISONE [Suspect]
     Active Substance: PREDNISONE
     Indication: Light chain disease
     Dosage: 3 TIMES, AS A PART OF KD+MP REGIMEN
     Route: 065
     Dates: start: 202304, end: 202306
  25. PREDNISONE [Suspect]
     Active Substance: PREDNISONE
     Indication: Plasma cell myeloma
  26. VINCRISTINE [Suspect]
     Active Substance: VINCRISTINE
     Indication: Light chain disease
     Dosage: 3 TIMES AS A PART OF VAD+ IXAZOMIB REGIMEN
     Route: 065
     Dates: start: 202306, end: 202308
  27. VINCRISTINE [Suspect]
     Active Substance: VINCRISTINE
     Indication: Plasma cell myeloma
  28. IXAZOMIB [Suspect]
     Active Substance: IXAZOMIB
     Indication: Light chain disease
     Dosage: 3 TIMES AS A PART OF VAD+ IXAZOMIB REGIMEN
     Route: 065
     Dates: start: 202306, end: 202308
  29. IXAZOMIB [Suspect]
     Active Substance: IXAZOMIB
     Indication: Plasma cell myeloma

REACTIONS (4)
  - Light chain disease [Unknown]
  - Plasma cell myeloma [Unknown]
  - Febrile neutropenia [Unknown]
  - Therapy partial responder [Unknown]
